FAERS Safety Report 6357538-X (Version None)
Quarter: 2009Q3

REPORT INFORMATION
  Report Type: 
  Country: None (occurrence: None)
  Receive Date: 20090916
  Receipt Date: 20090914
  Transmission Date: 20100115
  Serious: Yes (Death, Hospitalization, Other)
  Sender: FDA-Public Use
  Company Number: NL-ELI_LILLY_AND_COMPANY-NL200904001918

PATIENT
  Sex: Male

DRUGS (12)
  1. GEMZAR [Suspect]
     Indication: NON-SMALL CELL LUNG CANCER
  2. ALIMTA [Suspect]
     Indication: NON-SMALL CELL LUNG CANCER
     Dosage: 980 MG, UNKNOWN
     Route: 065
     Dates: start: 20090316
  3. CARBOPLATIN [Concomitant]
     Indication: NON-SMALL CELL LUNG CANCER
  4. FOLIC ACID [Concomitant]
     Indication: PROPHYLAXIS
  5. VITAMIN B-12 [Concomitant]
     Indication: PROPHYLAXIS
  6. DICLOFENAC SODIUM [Concomitant]
  7. OMEPRAZOLE [Concomitant]
  8. FRAGMIN [Concomitant]
  9. METFORMIN HCL [Concomitant]
  10. PERSANTINE [Concomitant]
  11. EPREX [Concomitant]
  12. OXYCONTIN [Concomitant]

REACTIONS (8)
  - ADVERSE DRUG REACTION [None]
  - ANAEMIA [None]
  - BRONCHIAL CARCINOMA [None]
  - HYPOPHAGIA [None]
  - INFECTION [None]
  - LEUKOPENIA [None]
  - RENAL FAILURE ACUTE [None]
  - THROMBOCYTOPENIA [None]
